FAERS Safety Report 19361020 (Version 1)
Quarter: 2021Q2

REPORT INFORMATION
  Report Type: Report from Study
  Country: None (occurrence: US)
  Receive Date: 20210602
  Receipt Date: 20210602
  Transmission Date: 20210717
  Serious: No
  Sender: FDA-Public Use
  Company Number: US-MDD US OPERATIONS-USW202004-000748

PATIENT
  Age: 43 Year
  Sex: Female
  Weight: 111.13 kg

DRUGS (7)
  1. CITRIZINE [Concomitant]
  2. METFORMIN [Concomitant]
     Active Substance: METFORMIN HYDROCHLORIDE
  3. CARB/LEVO [Concomitant]
     Active Substance: CARBIDOPA\LEVODOPA
  4. ROPINIROLE. [Concomitant]
     Active Substance: ROPINIROLE
  5. APOKYN [Suspect]
     Active Substance: APOMORPHINE HYDROCHLORIDE
     Indication: PARKINSON^S DISEASE
     Route: 058
     Dates: start: 20200107
  6. APOKYN [Suspect]
     Active Substance: APOMORPHINE HYDROCHLORIDE
  7. NO DRUG NAME [Concomitant]
     Active Substance: UNSPECIFIED INGREDIENT

REACTIONS (3)
  - Vomiting [Unknown]
  - Dizziness [Not Recovered/Not Resolved]
  - Hyperhidrosis [Unknown]

NARRATIVE: CASE EVENT DATE: 202001
